FAERS Safety Report 18785130 (Version 1)
Quarter: 2021Q1

REPORT INFORMATION
  Report Type: Not Available
  Country: CA (occurrence: CA)
  Receive Date: 20210125
  Receipt Date: 20210125
  Transmission Date: 20210419
  Serious: Yes (Hospitalization)
  Sender: FDA-Public Use
  Company Number: CA-CELGENEUS-CAN-20210105075

PATIENT
  Age: 55 Year
  Sex: Female
  Weight: 61 kg

DRUGS (6)
  1. LETROZOLE. [Concomitant]
     Active Substance: LETROZOLE
     Indication: PRODUCT USED FOR UNKNOWN INDICATION
     Route: 048
  2. REACTINE [Concomitant]
     Indication: PRODUCT USED FOR UNKNOWN INDICATION
     Route: 065
  3. CELEBREX [Concomitant]
     Active Substance: CELECOXIB
     Indication: PRODUCT USED FOR UNKNOWN INDICATION
     Route: 065
  4. PANTOPRAZOLE [Concomitant]
     Active Substance: PANTOPRAZOLE
     Indication: PRODUCT USED FOR UNKNOWN INDICATION
     Route: 065
  5. ABRAXANE [Suspect]
     Active Substance: PACLITAXEL
     Indication: BREAST CANCER
     Route: 042
  6. TECENTRIQ [Suspect]
     Active Substance: ATEZOLIZUMAB
     Indication: BREAST CANCER
     Route: 042

REACTIONS (3)
  - Fatigue [Not Recovered/Not Resolved]
  - Ataxia [Not Recovered/Not Resolved]
  - Pain [Not Recovered/Not Resolved]
